FAERS Safety Report 14337697 (Version 26)
Quarter: 2021Q4

REPORT INFORMATION
  Report Type: Spontaneous
  Country: CA (occurrence: CA)
  Receive Date: 20171229
  Receipt Date: 20211104
  Transmission Date: 20220303
  Serious: Yes (Death, Life-Threatening, Hospitalization, Disabling, Other)
  Sender: FDA-Public Use
  Company Number: CA-TAKEDA-2017TUS026989

PATIENT
  Age: 61 Year
  Sex: Female
  Weight: 67 kg

DRUGS (51)
  1. AMIODARONE HYDROCHLORIDE [Suspect]
     Active Substance: AMIODARONE HYDROCHLORIDE
     Dosage: UNK
     Dates: start: 2017, end: 2017
  2. AZITHROMYCIN [Suspect]
     Active Substance: AZITHROMYCIN
     Dosage: 500 MG, 1X/DAY (QD)
     Route: 042
     Dates: start: 2017, end: 2017
  3. CEFTRIAXONE SODIUM [Suspect]
     Active Substance: CEFTRIAXONE SODIUM
     Dosage: 1 G, 1X/DAY (QD)
     Route: 042
     Dates: start: 2017, end: 2017
  4. CEFTRIAXONE SODIUM [Suspect]
     Active Substance: CEFTRIAXONE SODIUM
     Dosage: 1 G, 1X/DAY
     Route: 042
  5. CEFTRIAXONE SODIUM [Suspect]
     Active Substance: CEFTRIAXONE SODIUM
     Dosage: 1 G, EVERY 4 HRS
     Route: 042
     Dates: start: 2017, end: 2017
  6. DOXORUBICIN HYDROCHLORIDE [Suspect]
     Active Substance: DOXORUBICIN HYDROCHLORIDE
     Indication: Breast cancer
     Dosage: 106 MG, CYCLIC (Q2WEEKS (ONCE EVERY 14 DAYS); 1 EVERY 2 WEEK(S))
     Route: 042
     Dates: start: 2017, end: 2017
  7. DOXORUBICIN HYDROCHLORIDE [Suspect]
     Active Substance: DOXORUBICIN HYDROCHLORIDE
     Dosage: 106 MILLIGRAM, Q2WEEKS
     Route: 042
  8. DOXORUBICIN HYDROCHLORIDE [Suspect]
     Active Substance: DOXORUBICIN HYDROCHLORIDE
     Dosage: 106 MG
     Route: 042
  9. HYDROMORPHONE HYDROCHLORIDE [Suspect]
     Active Substance: HYDROMORPHONE HYDROCHLORIDE
     Dosage: 0.25-0.5 MG (ONCE IN 4 TO 6 HRS PRN)
     Route: 042
     Dates: start: 2017, end: 2017
  10. HYDROMORPHONE HYDROCHLORIDE [Suspect]
     Active Substance: HYDROMORPHONE HYDROCHLORIDE
     Dosage: UNK
     Route: 042
  11. METHYLPREDNISOLONE SODIUM SUCCINATE [Suspect]
     Active Substance: METHYLPREDNISOLONE SODIUM SUCCINATE
     Dosage: 125 MG, 4X/DAY (EVERY 6 HOURS)
     Route: 042
     Dates: start: 2017, end: 2017
  12. METHYLPREDNISOLONE SODIUM SUCCINATE [Suspect]
     Active Substance: METHYLPREDNISOLONE SODIUM SUCCINATE
     Dosage: 125 MG, 4X/DAY
     Route: 042
  13. MORPHINE SULFATE [Suspect]
     Active Substance: MORPHINE SULFATE
     Dosage: UNK
     Route: 042
  14. PACLITAXEL [Suspect]
     Active Substance: PACLITAXEL
     Indication: Breast cancer
     Dosage: 297 MG, Q2WEEKS (ONCE EVERY 14 DAYS) (1 EVERY 2 WEEK(S))
     Route: 042
     Dates: start: 2017, end: 2017
  15. PACLITAXEL [Suspect]
     Active Substance: PACLITAXEL
     Dosage: 297 MG, UNK
     Route: 042
  16. PANTOPRAZOLE [Suspect]
     Active Substance: PANTOPRAZOLE
     Dosage: 8 MG, ONCE EVERY HOUR
     Route: 042
     Dates: start: 20170318
  17. PANTOPRAZOLE [Suspect]
     Active Substance: PANTOPRAZOLE
     Dosage: 8 MG, (Q1HR)
     Route: 042
  18. MORPHINE HYDROCHLORIDE [Suspect]
     Active Substance: MORPHINE HYDROCHLORIDE
     Dosage: UNK
     Route: 042
     Dates: start: 2017
  19. FUROSEMIDE [Suspect]
     Active Substance: FUROSEMIDE
     Indication: Breast cancer
     Dosage: 40 MG, 1X/DAY (QD)
     Route: 048
     Dates: start: 2017, end: 2017
  20. FUROSEMIDE [Suspect]
     Active Substance: FUROSEMIDE
     Dosage: 40 MG, 1X/DAY (QD)
     Route: 048
  21. TRASTUZUMAB [Suspect]
     Active Substance: TRASTUZUMAB
     Indication: Breast cancer
     Dosage: UNK
     Route: 065
     Dates: start: 2017
  22. DIMENHYDRINATE [Suspect]
     Active Substance: DIMENHYDRINATE
     Dosage: 50 MG, EVERY 4 HRS
     Route: 042
     Dates: start: 2017, end: 2017
  23. DIMENHYDRINATE [Suspect]
     Active Substance: DIMENHYDRINATE
     Dosage: 50 MILLIGRAM, Q4HR
     Route: 042
     Dates: start: 2017, end: 2017
  24. DIGOXIN [Suspect]
     Active Substance: DIGOXIN
     Dosage: 0.25 MG (ONE EVERY FOUR HOURS)
     Route: 042
     Dates: start: 2017, end: 2017
  25. DIGOXIN [Suspect]
     Active Substance: DIGOXIN
     Dosage: 10 MG, (1 EVERY 1 HOUR (S))
     Route: 042
     Dates: start: 2017, end: 2017
  26. DILTIAZEM [Suspect]
     Active Substance: DILTIAZEM
     Dosage: 180 MG, UNK
     Route: 048
     Dates: start: 2017, end: 2017
  27. LOVENOX [Suspect]
     Active Substance: ENOXAPARIN SODIUM
     Dosage: 40 MG, 1X/DAY (QD)
     Route: 058
     Dates: start: 2017, end: 2017
  28. HYDRALAZINE [Suspect]
     Active Substance: HYDRALAZINE HYDROCHLORIDE
     Dosage: 10 MG, EVERY FOUR HOURS (6 EVERY 1 DAYS)
     Route: 042
     Dates: start: 20170318
  29. HYDRALAZINE [Suspect]
     Active Substance: HYDRALAZINE HYDROCHLORIDE
     Dosage: 10 MG, 4X/DAY (1 EVERY 6 HOUR(S))
     Route: 042
  30. METOPROLOL [Suspect]
     Active Substance: METOPROLOL
     Dosage: 2.5 MG, 4X/DAY (EVERY 6 HOURS)
     Route: 042
     Dates: start: 20170318
  31. METOPROLOL [Suspect]
     Active Substance: METOPROLOL
     Dosage: 5 MG, 4X/DAY (EVERY 6 HOURS)
     Route: 042
     Dates: start: 20170318
  32. METOPROLOL [Suspect]
     Active Substance: METOPROLOL
     Dosage: 4MG, 4X/DAY
     Route: 042
  33. CYCLOPHOSPHAMIDE [Suspect]
     Active Substance: CYCLOPHOSPHAMIDE
     Indication: Breast cancer
     Dosage: 1060 MG, Q2WEEKS (ONCE EVERY 14 DAYS) (1 EVERY 2 WEEK(S))
     Route: 042
  34. CYCLOPHOSPHAMIDE [Suspect]
     Active Substance: CYCLOPHOSPHAMIDE
     Dosage: 1060 MG, Q2WEEKS (ONCE EVERY 14 DAYS)
     Route: 042
  35. CYCLOPHOSPHAMIDE [Suspect]
     Active Substance: CYCLOPHOSPHAMIDE
     Dosage: 1060 MG, Q2WEEKS (ONCE EVERY 14 DAYS)
     Route: 042
     Dates: start: 2017, end: 2017
  36. CYCLOPHOSPHAMIDE [Suspect]
     Active Substance: CYCLOPHOSPHAMIDE
     Dosage: 1060 MG, 1X/DAY
     Route: 042
  37. CYCLOPHOSPHAMIDE [Suspect]
     Active Substance: CYCLOPHOSPHAMIDE
     Indication: Breast cancer
     Dosage: 1060 MG, CYCLIC (1 EVERY 2 WEEK(S))
     Route: 042
     Dates: start: 2017
  38. CYCLOPHOSPHAMIDE [Suspect]
     Active Substance: CYCLOPHOSPHAMIDE
     Dosage: 1060 MG, CYCLIC (1 EVERY 2 WEEK(S))
     Route: 042
     Dates: start: 2017, end: 2017
  39. CYCLOPHOSPHAMIDE [Suspect]
     Active Substance: CYCLOPHOSPHAMIDE
     Dosage: 1060 MG, CYCLIC (1 EVERY 2 WEEK(S))
     Route: 042
  40. FILGRASTIM [Concomitant]
     Active Substance: FILGRASTIM
     Indication: Supportive care
     Dosage: 300 UG, 1X/DAY (QD)
     Route: 058
  41. FILGRASTIM [Concomitant]
     Active Substance: FILGRASTIM
     Dosage: UNK
  42. GABAPENTIN [Concomitant]
     Active Substance: GABAPENTIN
     Dosage: 100 MG, 3X/DAY (TID)
     Route: 048
  43. GABAPENTIN [Concomitant]
     Active Substance: GABAPENTIN
     Dosage: UNK
  44. METOCLOPRAMIDE [Concomitant]
     Active Substance: METOCLOPRAMIDE
     Dosage: 10 MG, 4X/DAY (Q6HR)
     Route: 048
     Dates: start: 20161215
  45. ONDANSETRON [Concomitant]
     Active Substance: ONDANSETRON
     Indication: Supportive care
     Dosage: 8 G, 2X/DAY (BID)
     Route: 048
  46. ONDANSETRON [Concomitant]
     Active Substance: ONDANSETRON
     Dosage: UNK
  47. DEXAMETHASONE [Concomitant]
     Active Substance: DEXAMETHASONE
     Indication: Supportive care
     Dosage: 20 MG, 1X/DAY (QD)
     Route: 048
  48. DEXAMETHASONE [Concomitant]
     Active Substance: DEXAMETHASONE
     Dosage: UNK
  49. APREPITANT [Concomitant]
     Active Substance: APREPITANT
     Indication: Supportive care
     Dosage: 125 MG, UNK
     Route: 048
  50. APREPITANT [Concomitant]
     Active Substance: APREPITANT
     Dosage: UNK
  51. ACETAMINOPHEN-CAFFEINE-CODEINE [Concomitant]
     Dosage: UNK

REACTIONS (3)
  - Atrial fibrillation [Fatal]
  - Hypoxia [Fatal]
  - Alveolitis [Fatal]

NARRATIVE: CASE EVENT DATE: 20170101
